FAERS Safety Report 17261797 (Version 1)
Quarter: 2020Q1

REPORT INFORMATION
  Report Type: Spontaneous
  Country: US (occurrence: US)
  Receive Date: 20200113
  Receipt Date: 20200113
  Transmission Date: 20200409
  Serious: Yes (Hospitalization, Other)
  Sender: FDA-Public Use
  Company Number: US-PFIZER INC-2020007776

PATIENT
  Age: 59 Year
  Sex: Female
  Weight: 69.85 kg

DRUGS (1)
  1. CHANTIX [Suspect]
     Active Substance: VARENICLINE TARTRATE
     Indication: SMOKING CESSATION THERAPY
     Dosage: UNK

REACTIONS (13)
  - Nervousness [Unknown]
  - Withdrawal syndrome [Unknown]
  - Visual acuity reduced [Unknown]
  - Gait disturbance [Unknown]
  - Drug ineffective [Unknown]
  - Tremor [Unknown]
  - Head injury [Unknown]
  - Nasopharyngitis [Unknown]
  - Depressed mood [Unknown]
  - Emphysema [Unknown]
  - Substance abuse [Unknown]
  - Dyspnoea [Unknown]
  - Fall [Unknown]

NARRATIVE: CASE EVENT DATE: 2014
